FAERS Safety Report 8409382 (Version 3)
Quarter: 2016Q2

REPORT INFORMATION
  Report Type: Report from Study
  Country: LB (occurrence: LB)
  Receive Date: 20120216
  Receipt Date: 20160602
  Transmission Date: 20160815
  Serious: Yes (Death, Life-Threatening, Hospitalization)
  Sender: FDA-Public Use
  Company Number: LB-SANOFI-AVENTIS-2012SA009880

PATIENT
  Age: 72 Year
  Sex: Female
  Weight: 74 kg

DRUGS (3)
  1. ELOXATIN [Suspect]
     Active Substance: OXALIPLATIN
     Indication: COLORECTAL CANCER METASTATIC
     Route: 042
     Dates: start: 20120202, end: 20120202
  2. XELODA [Suspect]
     Active Substance: CAPECITABINE
     Indication: COLORECTAL CANCER METASTATIC
     Route: 042
     Dates: start: 20120202, end: 20120202
  3. AMLOR [Concomitant]
     Active Substance: AMLODIPINE BESYLATE
     Dates: start: 2008

REACTIONS (1)
  - Intestinal perforation [Fatal]

NARRATIVE: CASE EVENT DATE: 20120206
